FAERS Safety Report 21892650 (Version 1)
Quarter: 2023Q1

REPORT INFORMATION
  Report Type: Spontaneous
  Country: HR (occurrence: HR)
  Receive Date: 20230120
  Receipt Date: 20230120
  Transmission Date: 20230418
  Serious: Yes (Life-Threatening, Hospitalization)
  Sender: FDA-Public Use
  Company Number: None

PATIENT
  Age: 62 Year
  Sex: Female
  Weight: 90 kg

DRUGS (3)
  1. PREGABALIN [Suspect]
     Active Substance: PREGABALIN
     Indication: Product used for unknown indication
     Dosage: 150 MILLIGRAM, QD, 2 TABLETS
     Route: 048
     Dates: start: 20221102, end: 20221102
  2. ACETAMINOPHEN\TRAMADOL HYDROCHLORIDE [Suspect]
     Active Substance: ACETAMINOPHEN\TRAMADOL HYDROCHLORIDE
     Indication: Product used for unknown indication
     Dosage: 17 DOSAGE FORM, QD (1DF=75MG TRAMADOL+650 MG PCM)
     Route: 048
     Dates: start: 20221102, end: 20221102
  3. AMITRIPTYLINE [Suspect]
     Active Substance: AMITRIPTYLINE
     Indication: Product used for unknown indication
     Dosage: 225 MILLIGRAM, QD, (9 TBL 2.5 MG/KG)
     Route: 048
     Dates: start: 20221102, end: 20221102

REACTIONS (4)
  - Respiratory depression [Unknown]
  - Suicide attempt [Unknown]
  - Coma [Unknown]
  - Intentional overdose [Unknown]

NARRATIVE: CASE EVENT DATE: 20221102
